FAERS Safety Report 8021621-3 (Version None)
Quarter: 2012Q1

REPORT INFORMATION
  Report Type: 
  Country: None (occurrence: None)
  Receive Date: 20120104
  Receipt Date: 20120104
  Transmission Date: 20120608
  Serious: Yes (Death)
  Sender: FDA-Public Use
  Company Number: None

PATIENT
  Age: 45 Year
  Sex: Female
  Weight: 99.79 kg

DRUGS (1)
  1. XARELTO [Suspect]
     Indication: ANTICOAGULANT THERAPY
     Dosage: 10MG
     Route: 048
     Dates: start: 20111214, end: 20111214

REACTIONS (3)
  - DIZZINESS [None]
  - UNRESPONSIVE TO STIMULI [None]
  - CARDIAC ARREST [None]
